FAERS Safety Report 25195238 (Version 2)
Quarter: 2025Q2

REPORT INFORMATION
  Report Type: Spontaneous
  Country: US (occurrence: US)
  Receive Date: 20250415
  Receipt Date: 20250415
  Transmission Date: 20250717
  Serious: Yes (Hospitalization)
  Sender: STRIDES
  Company Number: US-STRIDES ARCOLAB LIMITED-2024SP013557

PATIENT

DRUGS (2)
  1. AMOXICILLIN [Suspect]
     Active Substance: AMOXICILLIN
     Indication: Antibiotic therapy
     Route: 048
  2. AMPICILLIN SODIUM\SULBACTAM SODIUM [Concomitant]
     Active Substance: AMPICILLIN SODIUM\SULBACTAM SODIUM
     Indication: Antibiotic therapy
     Route: 048

REACTIONS (1)
  - Urticaria [Unknown]
